FAERS Safety Report 5335368-5 (Version None)
Quarter: 2007Q1

REPORT INFORMATION
  Report Type: 
  Country: None (occurrence: None)
  Receive Date: 20070327
  Receipt Date: 20060223
  Transmission Date: 20070707
  Serious: Yes (Disabling, Other)
  Sender: FDA-Public Use
  Company Number: HQWYE032627FEB06

PATIENT
  Sex: Male
  Weight: 88.98 kg

DRUGS (1)
  1. PROTONIX [Suspect]
     Indication: GASTROOESOPHAGEAL REFLUX DISEASE
     Dosage: 40 MG (FREQUENCY UNKNOWN) ORAL
     Route: 048
     Dates: start: 20060124, end: 20060127

REACTIONS (1)
  - ANGIOEDEMA [None]
